FAERS Safety Report 8803810 (Version 2)
Quarter: 2012Q4

REPORT INFORMATION
  Report Type: 
  Country: US (occurrence: US)
  Receive Date: 20120923
  Receipt Date: 20121015
  Transmission Date: 20130627
  Serious: Yes (Hospitalization, Other)
  Sender: FDA-Public Use
  Company Number: US-009507513-1209USA006249

PATIENT
  Age: 57 Year
  Sex: Female

DRUGS (7)
  1. INVANZ [Suspect]
     Indication: URINARY TRACT INFECTION
     Dosage: UNK
     Route: 042
     Dates: start: 20120910, end: 20120910
  2. INVANZ [Suspect]
     Indication: PYELONEPHRITIS
  3. INSULIN [Concomitant]
     Dosage: UNK
  4. HEPARIN [Concomitant]
     Dosage: UNK
     Dates: start: 20120904, end: 201209
  5. METRONIDAZOLE [Concomitant]
     Dosage: UNK
     Dates: start: 20120904, end: 201209
  6. GENTAMICIN [Concomitant]
     Dosage: UNK
     Dates: start: 20120904, end: 201209
  7. KEFZOL [Concomitant]
     Dosage: UNK
     Dates: start: 20120904

REACTIONS (10)
  - Pain in extremity [Recovered/Resolved]
  - Somnolence [Recovered/Resolved]
  - Pyrexia [Recovered/Resolved]
  - Diarrhoea [Recovered/Resolved]
  - Blood lactic acid increased [Recovered/Resolved]
  - White blood cell count increased [Recovered/Resolved]
  - Colostomy [Recovered/Resolved]
  - Tachycardia [Recovered/Resolved]
  - Septic shock [Recovered/Resolved]
  - Urticaria [Recovered/Resolved]
